FAERS Safety Report 8587487-8 (Version None)
Quarter: 2012Q3

REPORT INFORMATION
  Report Type: 
  Country: None (occurrence: None)
  Receive Date: 20120810
  Receipt Date: 20120726
  Transmission Date: 20120928
  Serious: Yes (Hospitalization, Other)
  Sender: FDA-Public Use
  Company Number: US-009507513-2012SP023296

PATIENT

DRUGS (8)
  1. COPEGUS [Suspect]
     Indication: PRODUCT USED FOR UNKNOWN INDICATION
     Route: 023
  2. INSULIN [Concomitant]
     Route: 048
  3. RISPERIDONE [Concomitant]
     Route: 048
  4. ATIVAN [Concomitant]
     Route: 048
  5. LISINOPRIL [Concomitant]
     Route: 048
  6. FENOFIBRATE [Concomitant]
     Route: 048
  7. VICTRELIS [Suspect]
  8. PEGASYS [Suspect]
     Route: 058

REACTIONS (6)
  - RENAL FAILURE [None]
  - NO THERAPEUTIC RESPONSE [None]
  - ANAEMIA [None]
  - THROMBOCYTOPENIA [None]
  - PNEUMONIA [None]
  - CHILLS [None]
